FAERS Safety Report 8397539-3 (Version None)
Quarter: 2012Q2

REPORT INFORMATION
  Report Type: 
  Country: None (occurrence: None)
  Receive Date: 20120529
  Receipt Date: 20120529
  Transmission Date: 20120825
  Serious: Yes (Death, Hospitalization)
  Sender: FDA-Public Use
  Company Number: None

PATIENT
  Age: 53 Year
  Sex: Female
  Weight: 54.5 kg

DRUGS (4)
  1. CARBOPLATIN [Suspect]
     Indication: URETHRAL CANCER
     Dosage: AUC5
     Dates: start: 20120329, end: 20120329
  2. RIDAFOROLIMUS [Suspect]
     Indication: URETHRAL CANCER
     Dosage: 10 MG PO DAYS 1-5; 8-12
     Route: 048
     Dates: start: 20120329, end: 20120402
  3. RIDAFOROLIMUS [Suspect]
     Indication: URETHRAL CANCER
     Dosage: 10 MG PO DAYS 1-5; 8-12
     Route: 048
     Dates: start: 20120405, end: 20120409
  4. PACLITAXEL [Suspect]
     Indication: URETHRAL CANCER
     Dosage: 175 MG/M2
     Dates: start: 20120329, end: 20120329

REACTIONS (18)
  - PAIN [None]
  - LETHARGY [None]
  - FAILURE TO THRIVE [None]
  - ASTHENIA [None]
  - HEPATIC LESION [None]
  - HYPOXIA [None]
  - HYPOKALAEMIA [None]
  - NEOPLASM PROGRESSION [None]
  - GENERAL PHYSICAL HEALTH DETERIORATION [None]
  - MALIGNANT PLEURAL EFFUSION [None]
  - PULMONARY EMBOLISM [None]
  - LUNG NEOPLASM [None]
  - RESPIRATORY FAILURE [None]
  - PNEUMONIA [None]
  - METASTASES TO LUNG [None]
  - URETHRAL CANCER METASTATIC [None]
  - ANXIETY [None]
  - UNRESPONSIVE TO STIMULI [None]
